FAERS Safety Report 26175713 (Version 1)
Quarter: 2025Q4

REPORT INFORMATION
  Report Type: Spontaneous
  Country: US (occurrence: US)
  Receive Date: 20251218
  Receipt Date: 20251218
  Transmission Date: 20260118
  Serious: No
  Sender: PADAGIS
  Company Number: US-PADAGIS-2025PAD01542

PATIENT

DRUGS (2)
  1. ESTRADIOL [Suspect]
     Active Substance: ESTRADIOL
     Indication: Menopausal symptoms
     Dosage: 0.5 MG, APPROXIMATELY SIX MONTHS AGO SWITVHED TO 0.5MG
     Route: 065
  2. ESTRADIOL [Suspect]
     Active Substance: ESTRADIOL
     Indication: Menopausal symptoms
     Dosage: 0.25 MG, FOR MORE THAN A YEAR
     Route: 065

REACTIONS (4)
  - Oestradiol decreased [Unknown]
  - Disease recurrence [Unknown]
  - Drug ineffective [Unknown]
  - Product quality issue [Unknown]
